FAERS Safety Report 6160909-8 (Version None)
Quarter: 2009Q2

REPORT INFORMATION
  Report Type: 
  Country: None (occurrence: None)
  Receive Date: 20090417
  Receipt Date: 20090417
  Transmission Date: 20091009
  Serious: Yes (Other)
  Sender: FDA-Public Use
  Company Number: None

PATIENT
  Age: 32 Year
  Sex: Female
  Weight: 60.782 kg

DRUGS (2)
  1. PHENTERMINE 3. 75 MG TABLET QUALITEST [Suspect]
     Indication: WEIGHT DECREASED
     Dosage: 1 TABLET EVERYDAY PO
     Route: 048
     Dates: start: 20090410, end: 20090413
  2. BUMETANIDE [Suspect]
     Indication: WEIGHT DECREASED
     Dosage: 1 TABLET EVERYDAY PO
     Route: 048
     Dates: start: 20090410, end: 20090413

REACTIONS (11)
  - CHEST PAIN [None]
  - DIZZINESS [None]
  - DYSPNOEA [None]
  - FATIGUE [None]
  - FEELING COLD [None]
  - HEADACHE [None]
  - HYPOAESTHESIA [None]
  - HYPOPHAGIA [None]
  - INSOMNIA [None]
  - MOOD ALTERED [None]
  - TREMOR [None]
